FAERS Safety Report 4697875-8 (Version None)
Quarter: 2005Q2

REPORT INFORMATION
  Report Type: 
  Country: None (occurrence: None)
  Receive Date: 20050621
  Receipt Date: 20050621
  Transmission Date: 20051028
  Serious: Yes (Other)
  Sender: FDA-Public Use
  Company Number: None

PATIENT
  Sex: Male
  Weight: 107.3 kg

DRUGS (3)
  1. IRINOTECAN [Suspect]
     Indication: RECTAL CANCER
     Dosage: 180 MG/M2 IV (DAY 1 EVERY 14 DAYS
     Route: 042
     Dates: start: 20050404
  2. LEUCOVORIN [Suspect]
     Dosage: 400 MG/M2 IV (DAY 1 EVERY 14 DAYS)
     Route: 042
  3. FLUOROURACIL [Suspect]
     Dosage: BOLUS 400 MG/M2 IV PUSH (DAY 1 EVERY 14 DAYS)
     Route: 042

REACTIONS (3)
  - CHEST PAIN [None]
  - DYSPNOEA [None]
  - NAUSEA [None]
